FAERS Safety Report 12729470 (Version 1)
Quarter: 2016Q3

REPORT INFORMATION
  Report Type: Report from Study
  Country: CH (occurrence: CH)
  Receive Date: 20160909
  Receipt Date: 20160909
  Transmission Date: 20161109
  Serious: Yes (Hospitalization)
  Sender: FDA-Public Use
  Company Number: CH-JNJFOC-20160108936

PATIENT
  Age: 37 Year
  Sex: Male
  Weight: 65 kg

DRUGS (1)
  1. STELARA [Suspect]
     Active Substance: USTEKINUMAB
     Indication: PSORIASIS
     Route: 058
     Dates: start: 20130622, end: 20151117

REACTIONS (4)
  - Urinary tract infection bacterial [Recovered/Resolved]
  - Bladder catheter temporary [Recovered/Resolved]
  - Ureterolithiasis [Recovered/Resolved]
  - Body mass index increased [Unknown]

NARRATIVE: CASE EVENT DATE: 20150903
